FAERS Safety Report 12254521 (Version 2)
Quarter: 2016Q2

REPORT INFORMATION
  Report Type: Report from Study
  Country: US (occurrence: US)
  Receive Date: 20160411
  Receipt Date: 20160523
  Transmission Date: 20160815
  Serious: Yes (Death, Hospitalization, Other)
  Sender: FDA-Public Use
  Company Number: US-009507513-1604USA003760

PATIENT
  Age: 69 Year
  Sex: Female

DRUGS (2)
  1. REBETOL [Suspect]
     Active Substance: RIBAVIRIN
     Indication: HEPATITIS C
     Dosage: UNK
  2. SOFOSBUVIR [Suspect]
     Active Substance: SOFOSBUVIR
     Indication: HEPATITIS C
     Dosage: UNK

REACTIONS (8)
  - Hepatic function abnormal [Unknown]
  - Urinary tract infection [Unknown]
  - Encephalopathy [Unknown]
  - Death [Fatal]
  - Jaundice [Unknown]
  - Hepatocellular carcinoma [Unknown]
  - Acute kidney injury [Unknown]
  - Hypotension [Unknown]
